FAERS Safety Report 8256261-4 (Version None)
Quarter: 2012Q2

REPORT INFORMATION
  Report Type: 
  Country: None (occurrence: None)
  Receive Date: 20120403
  Receipt Date: 20120323
  Transmission Date: 20120825
  Serious: Yes (Life-Threatening)
  Sender: FDA-Public Use
  Company Number: AU-FRI-1000029495

PATIENT
  Sex: Male
  Weight: 70 kg

DRUGS (1)
  1. LEXAPRO [Suspect]
     Route: 048
     Dates: start: 20081028, end: 20090922

REACTIONS (4)
  - SUICIDAL IDEATION [None]
  - ERECTILE DYSFUNCTION [None]
  - LOSS OF LIBIDO [None]
  - MEMORY IMPAIRMENT [None]
